FAERS Safety Report 9438196 (Version 1)
Quarter: 2013Q3

REPORT INFORMATION
  Report Type: Spontaneous
  Country: US (occurrence: US)
  Receive Date: 20130802
  Receipt Date: 20130802
  Transmission Date: 20140515
  Serious: No
  Sender: FDA-Public Use
  Company Number: US-BRISTOL-MYERS SQUIBB COMPANY-16961567

PATIENT
  Age: 79 Year
  Sex: Female
  Weight: 58.96 kg

DRUGS (1)
  1. COUMADIN [Suspect]
     Indication: THROMBOSIS
     Dosage: 1DF: 1MG ON MON, THURSDAY.?2MG ON EVERY OTHER DAY

REACTIONS (2)
  - Urinary tract infection [Unknown]
  - Blood urine present [Unknown]
